FAERS Safety Report 14809330 (Version 1)
Quarter: 2018Q2

REPORT INFORMATION
  Report Type: Report from Study
  Country: US (occurrence: US)
  Receive Date: 20180425
  Receipt Date: 20180425
  Transmission Date: 20180711
  Serious: Yes (Other)
  Sender: FDA-Public Use
  Company Number: PHEH2018US015862

PATIENT
  Sex: Male
  Weight: 122.2 kg

DRUGS (2)
  1. COSENTYX [Suspect]
     Active Substance: SECUKINUMAB
     Indication: PSORIASIS
     Dosage: 300 MG, QMO
     Route: 058
     Dates: start: 20150824
  2. SORIATANE [Concomitant]
     Active Substance: ACITRETIN
     Indication: PRODUCT USED FOR UNKNOWN INDICATION
     Route: 065

REACTIONS (16)
  - Oxygen saturation decreased [Unknown]
  - Skin plaque [Unknown]
  - Arthralgia [Recovering/Resolving]
  - Cardiac failure [Unknown]
  - Pruritus [Unknown]
  - Psoriasis [Unknown]
  - Drug ineffective [Unknown]
  - Lung infection [Unknown]
  - Foot deformity [Unknown]
  - Gout [Unknown]
  - Pigmentation disorder [Unknown]
  - Dandruff [Unknown]
  - Heart valve incompetence [Unknown]
  - Dry skin [Unknown]
  - Scar [Unknown]
  - Skin exfoliation [Unknown]
